FAERS Safety Report 4549202-4 (Version None)
Quarter: 2005Q1

REPORT INFORMATION
  Report Type: 
  Country: None (occurrence: None)
  Receive Date: 20050106
  Receipt Date: 20050106
  Transmission Date: 20050727
  Serious: Yes (Death, Life-Threatening, Hospitalization)
  Sender: FDA-Public Use
  Company Number: None

PATIENT
  Age: 22 Year
  Sex: Female
  Weight: 70.3 kg

DRUGS (7)
  1. LIDOCAINE/TETRACA 10% OF EACH COMPOUNDED [Suspect]
     Indication: LOCAL ANAESTHESIA
     Dosage: OTO TOPICAL
     Route: 061
     Dates: start: 20041228, end: 20041228
  2. ORAL CONTRACEPTIVE [Concomitant]
  3. VIT E [Concomitant]
  4. TEA OIL [Concomitant]
  5. ADDERALL 5 [Concomitant]
  6. ALDACTONE [Concomitant]
  7. MARIJUANA [Concomitant]

REACTIONS (17)
  - AREFLEXIA [None]
  - AUTONOMIC NERVOUS SYSTEM IMBALANCE [None]
  - BODY TEMPERATURE FLUCTUATION [None]
  - BRAIN DEATH [None]
  - BRAIN HERNIATION [None]
  - BRAIN OEDEMA [None]
  - CARDIO-RESPIRATORY ARREST [None]
  - COMA [None]
  - CORNEAL REFLEX DECREASED [None]
  - DRUG LEVEL INCREASED [None]
  - DRUG TOXICITY [None]
  - GRAND MAL CONVULSION [None]
  - HEART RATE ABNORMAL [None]
  - INTRACRANIAL PRESSURE INCREASED [None]
  - LABILE BLOOD PRESSURE [None]
  - MYDRIASIS [None]
  - PUPIL FIXED [None]
